FAERS Safety Report 18146751 (Version 4)
Quarter: 2020Q4

REPORT INFORMATION
  Report Type: Spontaneous
  Country: US (occurrence: US)
  Receive Date: 20200813
  Receipt Date: 20201125
  Transmission Date: 20210113
  Serious: Yes (Hospitalization, Other)
  Sender: FDA-Public Use
  Company Number: US-PFIZER INC-2020312894

PATIENT
  Age: 77 Year
  Sex: Female

DRUGS (1)
  1. XELJANZ XR [Suspect]
     Active Substance: TOFACITINIB CITRATE
     Indication: RHEUMATOID ARTHRITIS
     Dosage: 11 MG, 1X/DAY
     Route: 048
     Dates: start: 202001, end: 20201109

REACTIONS (9)
  - Alopecia [Unknown]
  - Pain in extremity [Recovering/Resolving]
  - Kidney infection [Unknown]
  - Condition aggravated [Unknown]
  - Groin pain [Recovering/Resolving]
  - Drug ineffective [Unknown]
  - Gait disturbance [Unknown]
  - Product dose omission issue [Unknown]
  - Weight bearing difficulty [Unknown]

NARRATIVE: CASE EVENT DATE: 2020
